FAERS Safety Report 7581420-3 (Version None)
Quarter: 2011Q2

REPORT INFORMATION
  Report Type: 
  Country: None (occurrence: None)
  Receive Date: 20110629
  Receipt Date: 20110615
  Transmission Date: 20111010
  Serious: Yes (Other)
  Sender: FDA-Public Use
  Company Number: PHHY2011CA53759

PATIENT
  Sex: Female

DRUGS (4)
  1. ATACAND [Concomitant]
     Dosage: 32 MG PER DAY
     Dates: start: 20110516
  2. NORVASC [Concomitant]
     Dosage: 5 MG, PER DAY
     Dates: start: 20110516
  3. RASILEZ [Suspect]
     Indication: HYPERTENSION
     Dosage: 150 MG PER DAY
     Route: 048
     Dates: start: 20110225, end: 20110503
  4. ASPIRIN [Concomitant]
     Dosage: 81 MG PER DAY
     Dates: start: 20110516

REACTIONS (1)
  - VISUAL IMPAIRMENT [None]
